APPROVED DRUG PRODUCT: PRAMIPEXOLE DIHYDROCHLORIDE
Active Ingredient: PRAMIPEXOLE DIHYDROCHLORIDE
Strength: 1MG
Dosage Form/Route: TABLET;ORAL
Application: A202633 | Product #005 | TE Code: AB
Applicant: AUROBINDO PHARMA LTD
Approved: Oct 26, 2012 | RLD: No | RS: No | Type: RX